FAERS Safety Report 24208325 (Version 1)
Quarter: 2024Q3

REPORT INFORMATION
  Report Type: Spontaneous
  Country: US (occurrence: US)
  Receive Date: 20240814
  Receipt Date: 20240814
  Transmission Date: 20241017
  Serious: No
  Sender: BLUEPRINT MEDICINES
  Company Number: US-Blueprint Medicines Corporation-4442

PATIENT
  Sex: Female

DRUGS (1)
  1. AYVAKIT [Suspect]
     Active Substance: AVAPRITINIB
     Indication: Systemic mastocytosis
     Route: 065
     Dates: start: 20240601

REACTIONS (10)
  - Feeling abnormal [Not Recovered/Not Resolved]
  - Red blood cell morphology abnormal [Not Recovered/Not Resolved]
  - Laryngitis [Not Recovered/Not Resolved]
  - Pain [Not Recovered/Not Resolved]
  - Contusion [Not Recovered/Not Resolved]
  - Anaemia [Not Recovered/Not Resolved]
  - Rash [Recovering/Resolving]
  - Stress [Not Recovered/Not Resolved]
  - Mastocytosis [Not Recovered/Not Resolved]
  - Condition aggravated [Not Recovered/Not Resolved]
